FAERS Safety Report 10086010 (Version 1)
Quarter: 2014Q2

REPORT INFORMATION
  Report Type: Report from Study
  Country: DE (occurrence: DE)
  Receive Date: 20140418
  Receipt Date: 20140418
  Transmission Date: 20141212
  Serious: Yes (Other)
  Sender: FDA-Public Use
  Company Number: DE-ROCHE-1381759

PATIENT
  Age: 79 Year
  Sex: Female

DRUGS (14)
  1. MABTHERA [Suspect]
     Indication: B-CELL LYMPHOMA
     Route: 065
     Dates: start: 201003
  2. MABTHERA [Suspect]
     Route: 065
     Dates: start: 201208
  3. MABTHERA [Suspect]
     Route: 065
     Dates: start: 201311
  4. BENDAMUSTINE [Suspect]
     Indication: B-CELL LYMPHOMA
     Route: 065
     Dates: start: 201003
  5. CHLORAMBUCIL [Suspect]
     Indication: PRODUCT USED FOR UNKNOWN INDICATION
     Route: 065
     Dates: start: 201102
  6. FLUDARABINE [Suspect]
     Indication: PRODUCT USED FOR UNKNOWN INDICATION
     Route: 065
     Dates: start: 201107
  7. FLUDARABINE [Suspect]
     Route: 065
     Dates: start: 201208
  8. CYCLOPHOSPHAMIDE [Suspect]
     Indication: PRODUCT USED FOR UNKNOWN INDICATION
     Route: 065
     Dates: start: 201302
  9. DOXORUBICIN [Suspect]
     Indication: PRODUCT USED FOR UNKNOWN INDICATION
     Route: 065
     Dates: start: 201302
  10. VINCRISTINE [Suspect]
     Indication: PRODUCT USED FOR UNKNOWN INDICATION
     Route: 065
     Dates: start: 201302
  11. PREDNISONE [Suspect]
     Indication: PRODUCT USED FOR UNKNOWN INDICATION
     Route: 065
     Dates: start: 201302
  12. REVLIMID [Suspect]
     Indication: PRODUCT USED FOR UNKNOWN INDICATION
     Route: 065
     Dates: start: 201303
  13. DEXAMETHASONE [Suspect]
     Indication: PRODUCT USED FOR UNKNOWN INDICATION
     Route: 065
     Dates: start: 201305
  14. OFATUMUMAB [Suspect]
     Indication: PRODUCT USED FOR UNKNOWN INDICATION
     Route: 065
     Dates: start: 201310

REACTIONS (11)
  - Pancytopenia [Unknown]
  - Viraemia [Unknown]
  - Monoclonal gammopathy [Unknown]
  - Weight decreased [Recovering/Resolving]
  - Infection [Unknown]
  - Malignant neoplasm progression [Unknown]
  - Oedema peripheral [Unknown]
  - Decreased appetite [Unknown]
  - Pyrexia [Unknown]
  - Night sweats [Unknown]
  - Cystitis [Unknown]
